FAERS Safety Report 8520165-X (Version None)
Quarter: 2012Q3

REPORT INFORMATION
  Report Type: 
  Country: None (occurrence: None)
  Receive Date: 20120705
  Receipt Date: 20120622
  Transmission Date: 20120928
  Serious: Yes (Other)
  Sender: FDA-Public Use
  Company Number: 2012SP024193

PATIENT
  Age: 50 Year
  Sex: Male
  Weight: 67 kg

DRUGS (17)
  1. REBETOL [Suspect]
     Indication: HEPATITIS C
     Dosage: 800;600;200 MG, QD, PO
     Route: 048
     Dates: start: 20120117
  2. REBETOL [Suspect]
     Indication: HEPATITIS C
     Dosage: 800;600;200 MG, QD, PO
     Route: 048
     Dates: start: 20120327, end: 20120409
  3. REBETOL [Suspect]
     Indication: HEPATITIS C
     Dosage: 800;600;200 MG, QD, PO
     Route: 048
     Dates: start: 20120410
  4. CONFATANIN [Concomitant]
  5. FAMOTIDINE [Concomitant]
  6. FAMOTIDINE [Concomitant]
  7. XYZAL [Concomitant]
  8. PEG-INTRON [Suspect]
     Indication: HEPATITIS C
     Dosage: 1.5;1.3 MCG/KG, QW, SC
     Route: 058
     Dates: start: 20120228, end: 20120306
  9. PEG-INTRON [Suspect]
     Indication: HEPATITIS C
     Dosage: 1.5;1.3 MCG/KG, QW, SC
     Route: 058
     Dates: start: 20120313
  10. PEG-INTRON [Suspect]
     Indication: HEPATITIS C
     Dosage: 1.5;1.3 MCG/KG, QW, SC
     Route: 058
     Dates: start: 20120117, end: 20120221
  11. CLOBETASOL PROPIONATE [Concomitant]
  12. TELAVIC (ANTIVIRALS NOS) [Suspect]
     Indication: HEPATITIS C
     Dosage: 2250;1500 MG, QD, PO
     Route: 048
     Dates: start: 20120120, end: 20120120
  13. TELAVIC (ANTIVIRALS NOS) [Suspect]
     Indication: HEPATITIS C
     Dosage: 2250;1500 MG, QD, PO
     Route: 048
     Dates: start: 20120410
  14. TELAVIC (ANTIVIRALS NOS) [Suspect]
     Indication: HEPATITIS C
     Dosage: 2250;1500 MG, QD, PO
     Route: 048
     Dates: start: 20120117, end: 20120119
  15. TELAVIC (ANTIVIRALS NOS) [Suspect]
     Indication: HEPATITIS C
     Dosage: 2250;1500 MG, QD, PO
     Route: 048
     Dates: start: 20120121, end: 20120409
  16. CLOBETASOL PROPIONATE [Concomitant]
  17. CONFATANIN [Concomitant]

REACTIONS (19)
  - PYREXIA [None]
  - SOMNOLENCE [None]
  - INSOMNIA [None]
  - NAUSEA [None]
  - ABDOMINAL DISTENSION [None]
  - WEIGHT DECREASED [None]
  - DRUG ERUPTION [None]
  - HYPOPHAGIA [None]
  - ERYTHEMA [None]
  - DYSPNOEA [None]
  - HAEMOGLOBIN DECREASED [None]
  - MALAISE [None]
  - RASH [None]
  - DECREASED APPETITE [None]
  - PRURITUS [None]
  - HEADACHE [None]
  - HYPERURICAEMIA [None]
  - TREATMENT NONCOMPLIANCE [None]
  - GAIT DISTURBANCE [None]
